FAERS Safety Report 9663115 (Version 2)
Quarter: 2013Q4

REPORT INFORMATION
  Report Type: Report from Study
  Country: EE (occurrence: EE)
  Receive Date: 20131101
  Receipt Date: 20131219
  Transmission Date: 20140711
  Serious: Yes (Other)
  Sender: FDA-Public Use
  Company Number: EE-ABBVIE-13P-221-1161762-00

PATIENT
  Age: 44 Year
  Sex: Female
  Weight: 57 kg

DRUGS (3)
  1. HUMIRA [Suspect]
     Indication: RHEUMATOID ARTHRITIS
     Dosage: LAST INJECTION OF HUMIRA 19 AUG 2013
     Dates: start: 20130610, end: 20130819
  2. HUMIRA [Suspect]
     Indication: SJOGREN^S SYNDROME
  3. ARAVA [Concomitant]
     Indication: PRODUCT USED FOR UNKNOWN INDICATION

REACTIONS (5)
  - Photodermatosis [Recovered/Resolved]
  - Lupus-like syndrome [Recovered/Resolved]
  - Leukopenia [Unknown]
  - Alanine aminotransferase increased [Unknown]
  - Aspartate aminotransferase increased [Unknown]
